FAERS Safety Report 9219734 (Version 1)
Quarter: 2013Q2

REPORT INFORMATION
  Report Type: Spontaneous
  Country: US (occurrence: None)
  Receive Date: 20130405
  Receipt Date: 20130405
  Transmission Date: 20140414
  Serious: Yes (Disabling, Other)
  Sender: FDA-Public Use
  Company Number: 2013P1004129

PATIENT
  Age: 77 Year
  Sex: Female

DRUGS (11)
  1. METOCLOPRAMIDE [Suspect]
     Indication: GASTROOESOPHAGEAL REFLUX DISEASE
     Dates: start: 1991, end: 201102
  2. AMLODIPINE [Concomitant]
  3. TRAZODONE [Concomitant]
  4. METFORMIN [Concomitant]
  5. LAMOTRIGINE [Concomitant]
  6. OMEPRAZOLE [Concomitant]
  7. ATENOLOL [Concomitant]
  8. IRBESARTAN [Concomitant]
  9. SIMVASTATIN [Concomitant]
  10. GLIPIZIDE [Concomitant]
  11. ASPIRIN [Concomitant]

REACTIONS (1)
  - Parkinsonism [None]
